FAERS Safety Report 9197501 (Version 1)
Quarter: 2013Q1

REPORT INFORMATION
  Report Type: Spontaneous
  Country: FR (occurrence: FR)
  Receive Date: 20130328
  Receipt Date: 20130328
  Transmission Date: 20140127
  Serious: Yes (Other)
  Sender: FDA-Public Use
  Company Number: FR-CELGENEUS-056-21880-13033486

PATIENT
  Sex: Female

DRUGS (5)
  1. REVLIMID [Suspect]
     Indication: PLASMA CELL MYELOMA
     Route: 048
     Dates: start: 20080221, end: 20080603
  2. DEXAMETHASONE [Concomitant]
     Indication: PLASMA CELL MYELOMA
     Route: 065
     Dates: start: 20080221, end: 20080603
  3. DEXAMETHASONE [Concomitant]
     Route: 065
     Dates: start: 20080721, end: 20081029
  4. DEXAMETHASONE [Concomitant]
     Route: 065
     Dates: start: 20081114, end: 20090423
  5. LEVOTHYROX [Concomitant]
     Indication: HYPOTHYROIDISM
     Route: 065
     Dates: start: 2004

REACTIONS (1)
  - Basal cell carcinoma [Unknown]
